FAERS Safety Report 9199523 (Version 1)
Quarter: 2013Q1

REPORT INFORMATION
  Report Type: Spontaneous
  Country: US (occurrence: US)
  Receive Date: 20130329
  Receipt Date: 20130329
  Transmission Date: 20140127
  Serious: Yes (Hospitalization)
  Sender: FDA-Public Use
  Company Number: US-JNJFOC-20130314780

PATIENT
  Sex: Male
  Weight: 72 kg

DRUGS (9)
  1. XARELTO [Suspect]
     Indication: CEREBROVASCULAR ACCIDENT PROPHYLAXIS
     Route: 048
     Dates: start: 201303, end: 201303
  2. XARELTO [Suspect]
     Indication: ATRIAL FIBRILLATION
     Route: 048
     Dates: start: 201303, end: 201303
  3. ALLOPURINOL [Concomitant]
     Route: 048
  4. TYLENOL [Concomitant]
     Route: 065
  5. RENVELA [Concomitant]
     Route: 065
  6. DILAUDID [Concomitant]
     Route: 065
  7. ZOFRAN [Concomitant]
     Route: 065
  8. PROTONIX [Concomitant]
     Route: 048
  9. BICARBONATE [Concomitant]
     Route: 065

REACTIONS (3)
  - Renal failure acute [Unknown]
  - Hepatic failure [Unknown]
  - Myocardial infarction [Unknown]
